FAERS Safety Report 20173883 (Version 1)
Quarter: 2021Q4

REPORT INFORMATION
  Report Type: Spontaneous
  Country: US (occurrence: US)
  Receive Date: 20211213
  Receipt Date: 20211213
  Transmission Date: 20220304
  Serious: No
  Sender: FDA-Public Use
  Company Number: US-AUROBINDO-AUR-APL-2021-025265

PATIENT
  Sex: Female
  Weight: 73.4 kg

DRUGS (2)
  1. MIRTAZAPINE [Suspect]
     Active Substance: MIRTAZAPINE
     Indication: Depression
     Dosage: 1 DOSAGE FORM, ONCE A DAY
     Route: 065
     Dates: start: 20191230
  2. MIRTAZAPINE [Suspect]
     Active Substance: MIRTAZAPINE
     Indication: Insomnia
     Dosage: 15 MILLIGRAM, ONCE A DAY AT BED TIME
     Route: 048
     Dates: end: 20210521

REACTIONS (5)
  - Tremor [Recovered/Resolved]
  - Nightmare [Recovered/Resolved]
  - Dyskinesia [Recovered/Resolved]
  - Drug ineffective [Unknown]
  - Recalled product administered [Unknown]
